FAERS Safety Report 7424077-4 (Version None)
Quarter: 2011Q2

REPORT INFORMATION
  Report Type: 
  Country: None (occurrence: None)
  Receive Date: 20110419
  Receipt Date: 20110406
  Transmission Date: 20111010
  Serious: No
  Sender: FDA-Public Use
  Company Number: CA-ELI_LILLY_AND_COMPANY-CA201104001496

PATIENT
  Sex: Male
  Weight: 85.5 kg

DRUGS (10)
  1. ZYPREXA [Suspect]
     Dosage: 5 MG, QD
     Route: 048
     Dates: start: 20010412, end: 20020422
  2. ZYPREXA [Suspect]
     Dosage: 5 MG, TID
     Route: 048
     Dates: start: 20040714, end: 20050415
  3. ZYPREXA [Suspect]
     Dosage: 2.5 MG, QD
     Route: 048
     Dates: start: 20050707
  4. EPIVAL [Concomitant]
     Dosage: 500 UNK, UNK
  5. ZYPREXA [Suspect]
     Dosage: 10 MG, QD
     Route: 048
     Dates: start: 20040610, end: 20040714
  6. ZYPREXA [Suspect]
     Dosage: 2.5 MG, QD
     Route: 048
     Dates: start: 20020422, end: 20020708
  7. CRESTOR [Concomitant]
  8. ZYPREXA [Suspect]
     Dosage: 5 MG, QD
     Route: 048
     Dates: start: 20020708, end: 20040610
  9. RISPERIDON [Concomitant]
     Dosage: 1 MG, BID
     Route: 048
     Dates: start: 20080708
  10. CELEXA [Concomitant]
     Dosage: 20 MG, QD
     Route: 048
     Dates: start: 19990615

REACTIONS (2)
  - DIABETES MELLITUS [None]
  - MACROCYTOSIS [None]
